FAERS Safety Report 6159668-4 (Version None)
Quarter: 2009Q2

REPORT INFORMATION
  Report Type: 
  Country: None (occurrence: None)
  Receive Date: 20090415
  Receipt Date: 20090402
  Transmission Date: 20091009
  Serious: Yes (Life-Threatening)
  Sender: FDA-Public Use
  Company Number: OMPQ-NO-0902S-0128

PATIENT
  Age: 83 Year
  Sex: Female

DRUGS (1)
  1. OMNIPAQUE 140 [Suspect]
     Indication: PANCREATITIS ACUTE
     Dosage: 100 ML, SINGLE DOSE, I.V.
     Route: 042
     Dates: start: 20090217, end: 20090217

REACTIONS (4)
  - ANAPHYLACTOID SHOCK [None]
  - ELECTROCARDIOGRAM ST SEGMENT ABNORMAL [None]
  - FEELING ABNORMAL [None]
  - PRINZMETAL ANGINA [None]
